FAERS Safety Report 14228454 (Version 2)
Quarter: 2018Q1

REPORT INFORMATION
  Report Type: Report from Study
  Country: IE (occurrence: IE)
  Receive Date: 20171127
  Receipt Date: 20180112
  Transmission Date: 20180508
  Serious: Yes (Hospitalization, Other)
  Sender: FDA-Public Use
  Company Number: IE-AMGEN-IRLSL2017177133

PATIENT
  Age: 69 Year
  Sex: Female

DRUGS (7)
  1. PREDNISOLONE. [Concomitant]
     Active Substance: PREDNISOLONE
     Dosage: 5 MG, QD
     Route: 050
  2. PROTIUM [Concomitant]
     Dosage: 40 MG, QD
     Route: 050
  3. ARANESP [Suspect]
     Active Substance: DARBEPOETIN ALFA
     Indication: CHRONIC KIDNEY DISEASE
     Dosage: 40 MCG, QWK
     Route: 058
     Dates: start: 20170905
  4. RENAGEL [Concomitant]
     Active Substance: SEVELAMER HYDROCHLORIDE
     Dosage: 800 MG, TID
     Route: 050
  5. STILNOCT [Concomitant]
     Active Substance: ZOLPIDEM TARTRATE
     Dosage: 10 MG, AT NIGHT
     Route: 050
  6. ZISPIN [Concomitant]
     Active Substance: MIRTAZAPINE
     Dosage: 45 MG, AT NIGHT
     Route: 050
  7. AMLODIPINE [Concomitant]
     Active Substance: AMLODIPINE BESYLATE
     Dosage: 10 MG, QD
     Route: 050

REACTIONS (2)
  - Lung infection [Not Recovered/Not Resolved]
  - Azotaemia [Unknown]

NARRATIVE: CASE EVENT DATE: 2017
